FAERS Safety Report 9093560 (Version 1)
Quarter: 2013Q1

REPORT INFORMATION
  Report Type: Spontaneous
  Country: DE (occurrence: DE)
  Receive Date: 20130201
  Receipt Date: 20130201
  Transmission Date: 20140127
  Serious: Yes (Other)
  Sender: FDA-Public Use
  Company Number: DE-BAYER-2012-122864

PATIENT
  Age: 36 Year
  Sex: Female
  Weight: 57 kg

DRUGS (3)
  1. MIRENA [Suspect]
     Dosage: 20 MCG/24HR, CONT
     Route: 015
  2. FOLIC ACID [Concomitant]
  3. IRON [Concomitant]

REACTIONS (4)
  - Device expulsion [None]
  - Drug ineffective [None]
  - Pregnancy with contraceptive device [None]
  - Caesarean section [None]
